FAERS Safety Report 9788930 (Version 2)
Quarter: 2014Q1

REPORT INFORMATION
  Report Type: Report from Study
  Country: NL (occurrence: NL)
  Receive Date: 20131230
  Receipt Date: 20140110
  Transmission Date: 20141002
  Serious: Yes (Hospitalization)
  Sender: FDA-Public Use
  Company Number: NL-GLAXOSMITHKLINE-B0956315A

PATIENT
  Age: 74 Year
  Sex: Male
  Weight: 76.3 kg

DRUGS (3)
  1. PAZOPANIB [Suspect]
     Indication: SARCOMA
     Dosage: 400MG TWICE PER DAY
     Route: 048
     Dates: start: 20131210
  2. ACETYLSALICYLZUUR CARDIO [Concomitant]
     Indication: TRANSIENT ISCHAEMIC ATTACK
     Dosage: 80MG PER DAY
     Route: 048
     Dates: start: 2012
  3. RANITIDINE [Concomitant]
     Indication: DYSPEPSIA
     Dosage: 75MG PER DAY
     Route: 048
     Dates: start: 20131210

REACTIONS (2)
  - Palpitations [Recovered/Resolved]
  - Chest pain [Recovered/Resolved]
